FAERS Safety Report 5040732-8 (Version None)
Quarter: 2006Q3

REPORT INFORMATION
  Report Type: 
  Country: None (occurrence: None)
  Receive Date: 20060703
  Receipt Date: 20060529
  Transmission Date: 20061208
  Serious: Yes (Other)
  Sender: FDA-Public Use
  Company Number: PHBS2006JP08192

PATIENT
  Age: 72 Year
  Sex: Male
  Weight: 45 kg

DRUGS (9)
  1. GASTER D [Concomitant]
     Dosage: 10 MG/DAY
     Route: 048
     Dates: start: 20060521, end: 20060522
  2. CEFAMEZIN [Concomitant]
     Indication: INFECTION
     Dosage: 2 G/DAY
     Route: 041
     Dates: start: 20060522, end: 20060523
  3. METILON [Concomitant]
     Indication: PYREXIA
     Dosage: 250 MG/DAY
     Route: 030
     Dates: start: 20060522, end: 20060522
  4. SOLDEM 3A [Concomitant]
     Indication: PROPHYLAXIS AGAINST DEHYDRATION
     Dosage: 2000 ML/DAY
     Route: 041
     Dates: start: 20060519, end: 20060528
  5. VOLTAREN [Suspect]
     Indication: PYREXIA
     Dosage: 100 MG/DAY
     Route: 054
     Dates: start: 20060522, end: 20060522
  6. BIOGAMMA [Suspect]
     Indication: MYCOSIS FUNGOIDES
     Dosage: 2 MIU/DAY
     Route: 041
     Dates: start: 20060515, end: 20060515
  7. BIOGAMMA [Suspect]
     Dosage: 2 MIU/DAY
     Route: 041
     Dates: start: 20060519, end: 20060519
  8. BIOGAMMA [Suspect]
     Dosage: 2 MIU/DAY
     Route: 041
     Dates: start: 20060522, end: 20060522
  9. VOLTAREN [Suspect]
     Dosage: 25 MG/DAY
     Route: 048
     Dates: start: 20060521, end: 20060522

REACTIONS (10)
  - ASPARTATE AMINOTRANSFERASE INCREASED [None]
  - BLOOD CREATINE PHOSPHOKINASE INCREASED [None]
  - BLOOD CREATININE INCREASED [None]
  - BLOOD LACTATE DEHYDROGENASE INCREASED [None]
  - BLOOD UREA INCREASED [None]
  - C-REACTIVE PROTEIN INCREASED [None]
  - CHILLS [None]
  - NAUSEA [None]
  - RENAL IMPAIRMENT [None]
  - VOMITING [None]
